FAERS Safety Report 24913759 (Version 1)
Quarter: 2025Q1

REPORT INFORMATION
  Report Type: Other
  Country: US (occurrence: US)
  Receive Date: 20250202
  Receipt Date: 20250202
  Transmission Date: 20250408
  Serious: Yes (Other)
  Sender: DEXCEL
  Company Number: US-DEXPHARM-2025-0712

PATIENT
  Age: 71 Year
  Sex: Male

DRUGS (5)
  1. HEMADY [Suspect]
     Active Substance: DEXAMETHASONE
  2. VENETOCLAX [Suspect]
     Active Substance: VENETOCLAX
  3. CARFILZOMIB [Suspect]
     Active Substance: CARFILZOMIB
  4. LENALIDOMIDE [Suspect]
     Active Substance: LENALIDOMIDE
  5. CYCLOPHOSPHAMIDE [Suspect]
     Active Substance: CYCLOPHOSPHAMIDE

REACTIONS (4)
  - Fatigue [Recovered/Resolved]
  - Nausea [Recovered/Resolved]
  - Constipation [Recovered/Resolved]
  - Oedema [Recovered/Resolved]
